FAERS Safety Report 23994089 (Version 1)
Quarter: 2024Q2

REPORT INFORMATION
  Report Type: Spontaneous
  Country: FR (occurrence: FR)
  Receive Date: 20240620
  Receipt Date: 20240620
  Transmission Date: 20240715
  Serious: Yes (Other)
  Sender: FDA-Public Use
  Company Number: FR-AFSSAPS-AVLL2024000138

PATIENT
  Age: 58 Year
  Sex: Female

DRUGS (1)
  1. ZOLPIDEM [Suspect]
     Active Substance: ZOLPIDEM TARTRATE
     Indication: Product used for unknown indication
     Dosage: 30 ARBITRARY UNITS, ONCE A DAY
     Route: 048
     Dates: start: 2006

REACTIONS (2)
  - Substance abuser [Unknown]
  - Drug dependence [Unknown]

NARRATIVE: CASE EVENT DATE: 20060101
